FAERS Safety Report 5932105-8 (Version None)
Quarter: 2008Q4

REPORT INFORMATION
  Report Type: 
  Country: None (occurrence: None)
  Receive Date: 20081027
  Receipt Date: 20081017
  Transmission Date: 20090506
  Serious: Yes (Other)
  Sender: FDA-Public Use
  Company Number: TW-TYCO HEALTHCARE/MALLINCKRODT-T200801712

PATIENT

DRUGS (8)
  1. SODIUM IODIDE I 131 [Suspect]
     Indication: WHOLE BODY SCAN
     Dosage: 30 MCI, SINGLE
     Route: 042
     Dates: start: 19900701, end: 19900701
  2. SODIUM IODIDE I 131 [Suspect]
     Dosage: 30 MCI, SINGLE
     Route: 042
     Dates: start: 19911001, end: 19911001
  3. SODIUM IODIDE I 131 [Suspect]
     Dosage: 60 MCI, SINGLE
     Route: 042
     Dates: start: 19920801, end: 19920801
  4. SODIUM IODIDE I 131 [Suspect]
     Dosage: 100 MCI, SINGLE
     Route: 042
     Dates: start: 19930301, end: 19930301
  5. SODIUM IODIDE I 131 [Suspect]
     Dosage: 100 MCI, SINGLE
     Route: 042
     Dates: start: 19930701, end: 19930701
  6. SODIUM IODIDE I 131 [Suspect]
     Dosage: 100 MCI, SINGLE
     Route: 042
     Dates: start: 19940901, end: 19940901
  7. SODIUM IODIDE I 131 [Suspect]
     Dosage: 100 MCI, SINGLE
     Route: 042
     Dates: start: 19951101, end: 19951101
  8. SODIUM IODIDE I 131 [Suspect]
     Dosage: 150 MCI, SINGLE
     Route: 042
     Dates: start: 19980401, end: 19980401

REACTIONS (1)
  - CHRONIC MYELOID LEUKAEMIA [None]
